FAERS Safety Report 18912986 (Version 1)
Quarter: 2021Q1

REPORT INFORMATION
  Report Type: Spontaneous
  Country: FR (occurrence: FR)
  Receive Date: 20210219
  Receipt Date: 20210219
  Transmission Date: 20210420
  Serious: Yes (Hospitalization)
  Sender: FDA-Public Use
  Company Number: FR-ORION CORPORATION ORION PHARMA-21_00013183

PATIENT
  Age: 56 Year
  Sex: Male

DRUGS (6)
  1. TRIVASTAL [Concomitant]
     Active Substance: PIRIBEDIL
     Route: 065
  2. CETIRIZINE (DICHLORHYDRATE DE) [Concomitant]
     Active Substance: CETIRIZINE HYDROCHLORIDE
     Route: 065
  3. AZILECT [Concomitant]
     Active Substance: RASAGILINE MESYLATE
     Dosage: STRENGTH: 1 MG
     Route: 065
  4. STALEVO [Suspect]
     Active Substance: CARBIDOPA\ENTACAPONE\LEVODOPA
     Indication: PARKINSON^S DISEASE
     Dosage: STRENGTH: 100/25/200 MG
     Route: 048
     Dates: start: 2020
  5. SPIRAMYCINE [Concomitant]
     Active Substance: SPIRAMYCIN
     Route: 065
  6. METRONIDAZOLE. [Concomitant]
     Active Substance: METRONIDAZOLE
     Route: 065

REACTIONS (5)
  - Chest pain [Recovered/Resolved]
  - Palpitations [Recovered/Resolved]
  - Hyperthermia [Recovered/Resolved]
  - Dyskinesia [Recovered/Resolved]
  - Agitation [Recovered/Resolved]

NARRATIVE: CASE EVENT DATE: 20210128
